FAERS Safety Report 5336715-0 (Version None)
Quarter: 2007Q2

REPORT INFORMATION
  Report Type: 
  Country: None (occurrence: None)
  Receive Date: 20070524
  Receipt Date: 20070524
  Transmission Date: 20071010
  Serious: Yes (Hospitalization)
  Sender: FDA-Public Use
  Company Number: None

PATIENT
  Age: 59 Year
  Sex: Male
  Weight: 83.0083 kg

DRUGS (2)
  1. DOCETAXEL 148MG (75 MG/M2) IVPB DAY 1 OF 21 DAY CYCLE [Suspect]
     Indication: LARYNGEAL CANCER STAGE IV
     Dosage: 148MG (75 MG/M2) IVPB DAY 1 OF 21 DAYCYCLE
     Route: 042
     Dates: start: 20061228
  2. DOCETAXEL 148MG (75 MG/M2) IVPB DAY 1 OF 21 DAY CYCLE [Suspect]
     Indication: METASTASES TO BONE
     Dosage: 148MG (75 MG/M2) IVPB DAY 1 OF 21 DAYCYCLE
     Route: 042
     Dates: start: 20061228

REACTIONS (1)
  - FEBRILE NEUTROPENIA [None]
